FAERS Safety Report 5124872-0 (Version None)
Quarter: 2006Q4

REPORT INFORMATION
  Report Type: 
  Country: None (occurrence: None)
  Receive Date: 20061011
  Receipt Date: 20060928
  Transmission Date: 20070319
  Serious: Yes (Hospitalization)
  Sender: FDA-Public Use
  Company Number: FR-AMGEN-UK195012

PATIENT
  Age: 52 Year
  Sex: Female

DRUGS (6)
  1. ARANESP [Suspect]
     Indication: DRUG USE FOR UNKNOWN INDICATION
     Dates: start: 20050928, end: 20051221
  2. NORVIR [Concomitant]
     Dates: start: 20050916
  3. VIREAD [Concomitant]
     Dates: start: 20050916
  4. LAMIVUDINE [Concomitant]
     Dates: start: 20050916
  5. ABACAVIR [Concomitant]
     Dates: start: 20050916
  6. TAXOTERE [Concomitant]
     Dates: start: 20050901

REACTIONS (2)
  - HEADACHE [None]
  - POLYCYTHAEMIA [None]
